FAERS Safety Report 16923637 (Version 1)
Quarter: 2019Q4

REPORT INFORMATION
  Report Type: Spontaneous
  Country: GB (occurrence: GB)
  Receive Date: 20191016
  Receipt Date: 20191016
  Transmission Date: 20200122
  Serious: Yes (Other)
  Sender: FDA-Public Use
  Company Number: GB-TEVA-2019-GB-1121484

PATIENT
  Age: 7 Year
  Sex: Male
  Weight: 15 kg

DRUGS (2)
  1. SERETIDE [Concomitant]
     Active Substance: FLUTICASONE PROPIONATE\SALMETEROL XINAFOATE
     Route: 055
     Dates: start: 20190624, end: 20190724
  2. MONTELUKAST [Suspect]
     Active Substance: MONTELUKAST SODIUM
     Dates: start: 20190829

REACTIONS (1)
  - Anger [Recovered/Resolved]

NARRATIVE: CASE EVENT DATE: 20190829
